FAERS Safety Report 8851697 (Version 1)
Quarter: 2012Q4

REPORT INFORMATION
  Report Type: Report from Study
  Country: CA (occurrence: CA)
  Receive Date: 20121022
  Receipt Date: 20121022
  Transmission Date: 20130627
  Serious: Yes (Other)
  Sender: FDA-Public Use
  Company Number: CA-JNJFOC-20121005980

PATIENT
  Age: 35 Year
  Sex: Female
  Weight: 72.58 kg

DRUGS (1)
  1. REMICADE [Suspect]
     Indication: CROHN^S DISEASE
     Route: 042
     Dates: start: 20110616

REACTIONS (3)
  - Tinea pedis [Recovering/Resolving]
  - Arthralgia [Not Recovered/Not Resolved]
  - Patellofemoral pain syndrome [Recovering/Resolving]
